FAERS Safety Report 5021235-3 (Version None)
Quarter: 2006Q2

REPORT INFORMATION
  Report Type: 
  Country: None (occurrence: None)
  Receive Date: 20060608
  Receipt Date: 20060518
  Transmission Date: 20061013
  Serious: Yes (Death)
  Sender: FDA-Public Use
  Company Number: JP-ROCHE-448940

PATIENT
  Age: 84 Year
  Sex: Female
  Weight: 40 kg

DRUGS (3)
  1. TAMIFLU [Suspect]
     Route: 048
     Dates: start: 20060120, end: 20060124
  2. DIOVAN [Concomitant]
     Route: 048
     Dates: start: 20050717, end: 20060130
  3. KEIMA-KAKUHAN-TO [Concomitant]
     Route: 048
     Dates: start: 20060120, end: 20060123

REACTIONS (2)
  - APLASTIC ANAEMIA [None]
  - PNEUMONIA [None]
